FAERS Safety Report 10153084 (Version 2)
Quarter: 2014Q2

REPORT INFORMATION
  Report Type: Report from Study
  Country: CA (occurrence: CA)
  Receive Date: 20140505
  Receipt Date: 20140505
  Transmission Date: 20141212
  Serious: Yes (Hospitalization, Other)
  Sender: FDA-Public Use
  Company Number: CA-BRISTOL-MYERS SQUIBB COMPANY-17270745

PATIENT
  Age: 54 Year
  Sex: Female
  Weight: 76 kg

DRUGS (15)
  1. ORENCIA [Suspect]
     Indication: RHEUMATOID ARTHRITIS
     Dosage: INF:2,LAST INF:17DEC12,Q4W?LOT#2J2521,EXP:JUL15?2K74506,3A77129:JUL15,2L70269,JUL15?3C83972,SEP15
     Route: 042
     Dates: start: 20121217
  2. SALAZOPYRIN [Concomitant]
  3. PANTOLOC [Concomitant]
  4. TYLENOL ARTHRITIS [Concomitant]
  5. ELAVIL [Concomitant]
  6. PROMETRIUM [Concomitant]
  7. METHOTREXATE [Concomitant]
  8. LEUCOVORIN [Concomitant]
  9. VITAMIN C [Concomitant]
  10. ESTRADIOL [Concomitant]
  11. PLAQUENIL [Concomitant]
  12. ESTRACE [Concomitant]
  13. VITAMIN D [Concomitant]
     Dosage: 1 DF=10000 UNITS NOS
  14. NAPROXEN [Concomitant]
  15. TYLENOL [Concomitant]

REACTIONS (10)
  - Colitis ischaemic [Recovered/Resolved]
  - Uterine leiomyoma [Unknown]
  - Back pain [Recovering/Resolving]
  - Nasopharyngitis [Not Recovered/Not Resolved]
  - Diarrhoea [Not Recovered/Not Resolved]
  - Oral herpes [Recovered/Resolved]
  - Fatigue [Unknown]
  - Depressed mood [Unknown]
  - Abdominal pain [Unknown]
  - Vaginal haemorrhage [Unknown]
